FAERS Safety Report 23328377 (Version 1)
Quarter: 2023Q4

REPORT INFORMATION
  Report Type: Spontaneous
  Country: FI (occurrence: FI)
  Receive Date: 20231221
  Receipt Date: 20231221
  Transmission Date: 20240110
  Serious: Yes (Life-Threatening, Other)
  Sender: FDA-Public Use
  Company Number: FI-NALPROPION PHARMACEUTICALS INC.-FI-2023CUR005215

PATIENT
  Age: 27 Year
  Sex: Female

DRUGS (2)
  1. BUPROPION HYDROCHLORIDE\NALTREXONE HYDROCHLORIDE [Suspect]
     Active Substance: BUPROPION HYDROCHLORIDE\NALTREXONE HYDROCHLORIDE
     Indication: Diabetes mellitus
     Dosage: STRENGTH 8/90 MG, 2 IN THE MORNING AND IN THE EVENING
     Route: 048
     Dates: start: 202307
  2. BUPROPION HYDROCHLORIDE\NALTREXONE HYDROCHLORIDE [Suspect]
     Active Substance: BUPROPION HYDROCHLORIDE\NALTREXONE HYDROCHLORIDE
     Indication: Hidradenitis

REACTIONS (4)
  - Self-destructive behaviour [Recovered/Resolved]
  - Major depression [Recovered/Resolved]
  - Blood glucose decreased [Recovered/Resolved]
  - Suicidal ideation [Recovered/Resolved]

NARRATIVE: CASE EVENT DATE: 20230701
